FAERS Safety Report 16206887 (Version 3)
Quarter: 2019Q2

REPORT INFORMATION
  Report Type: Report from Study
  Country: DE (occurrence: DE)
  Receive Date: 20190417
  Receipt Date: 20190503
  Transmission Date: 20190711
  Serious: Yes (Other)
  Sender: FDA-Public Use
  Company Number: DE-ROCHE-2304220

PATIENT
  Age: 52 Year
  Sex: Male
  Weight: 95 kg

DRUGS (1)
  1. ATEZOLIZUMAB. [Suspect]
     Active Substance: ATEZOLIZUMAB
     Indication: MALIGNANT URINARY TRACT NEOPLASM
     Dosage: DATE OF MOST RECENT DOSE OF ATEZOLIZUMAB PRIOR TO EVENT ONSET: 19/MAR/2019
     Route: 042
     Dates: start: 20170309

REACTIONS (2)
  - Hepatitis E [Recovering/Resolving]
  - Liver function test increased [Not Recovered/Not Resolved]

NARRATIVE: CASE EVENT DATE: 20190409
